FAERS Safety Report 9611079 (Version 3)
Quarter: 2014Q1

REPORT INFORMATION
  Report Type: Spontaneous
  Country: US (occurrence: US)
  Receive Date: 20131009
  Receipt Date: 20140212
  Transmission Date: 20141002
  Serious: Yes (Death, Hospitalization, Other)
  Sender: FDA-Public Use
  Company Number: US-GILEAD-2013-0085067

PATIENT
  Age: 86 Year
  Sex: Female

DRUGS (12)
  1. LETAIRIS [Suspect]
     Indication: PULMONARY ARTERIAL HYPERTENSION
     Dosage: 5 MG, UNK
     Route: 048
     Dates: start: 20130912, end: 20130916
  2. LETAIRIS [Suspect]
     Indication: PULMONARY HYPERTENSION
  3. LETAIRIS [Suspect]
     Indication: DIASTOLIC DYSFUNCTION
  4. LEVOTHYROXIN [Concomitant]
     Indication: HYPOTHYROIDISM
  5. K-DUR [Concomitant]
  6. ZOCOR [Concomitant]
  7. HYDRALAZINE [Concomitant]
  8. LASIX                              /00032601/ [Concomitant]
  9. FAMOTIDINE [Concomitant]
  10. ASPIRIN [Concomitant]
  11. ALLOPURINOL [Concomitant]
  12. CALCIUM [Concomitant]

REACTIONS (4)
  - Death [Fatal]
  - Dyspnoea [Unknown]
  - Cardiac failure congestive [Unknown]
  - Oedema peripheral [Unknown]
